FAERS Safety Report 11712391 (Version 1)
Quarter: 2015Q4

REPORT INFORMATION
  Report Type: Spontaneous
  Country: US (occurrence: US)
  Receive Date: 20151104
  Receipt Date: 20151104
  Transmission Date: 20160304
  Serious: No
  Sender: FDA-Public Use
  Company Number: US-ELI_LILLY_AND_COMPANY-US201103003233

PATIENT
  Sex: Female

DRUGS (3)
  1. FORTEO [Suspect]
     Active Substance: TERIPARATIDE
     Indication: OSTEOPOROSIS
     Dosage: 20 UG, QD
     Route: 065
  2. FORTEO [Suspect]
     Active Substance: TERIPARATIDE
     Dosage: 20 UG, QD
     Route: 065
  3. FORTEO [Suspect]
     Active Substance: TERIPARATIDE
     Dosage: 20 UG, QD

REACTIONS (14)
  - Renal disorder [Unknown]
  - Pigmentation disorder [Unknown]
  - Nausea [Unknown]
  - Bone pain [Unknown]
  - Solar lentigo [Unknown]
  - Asthenia [Unknown]
  - Pain [Unknown]
  - Muscle spasms [Unknown]
  - Temporomandibular joint syndrome [Unknown]
  - Dizziness [Unknown]
  - Blood pressure abnormal [Unknown]
  - Tenderness [Unknown]
  - Injection site reaction [Unknown]
  - Arthralgia [Unknown]
